FAERS Safety Report 23295853 (Version 3)
Quarter: 2024Q1

REPORT INFORMATION
  Report Type: Report from Study
  Country: DE (occurrence: DE)
  Receive Date: 20231214
  Receipt Date: 20240321
  Transmission Date: 20240410
  Serious: Yes (Hospitalization, Other)
  Sender: FDA-Public Use
  Company Number: DE-TAKEDA-2023TUS118348

PATIENT
  Age: 51 Year
  Sex: Female

DRUGS (20)
  1. TEDUGLUTIDE [Suspect]
     Active Substance: TEDUGLUTIDE
     Indication: Short-bowel syndrome
     Dosage: 1.55 MILLIGRAM, QD
     Route: 042
     Dates: start: 20171026, end: 20171129
  2. TEDUGLUTIDE [Suspect]
     Active Substance: TEDUGLUTIDE
     Indication: Short-bowel syndrome
     Dosage: 1.55 MILLIGRAM, QD
     Route: 042
     Dates: start: 20171026, end: 20171129
  3. TEDUGLUTIDE [Suspect]
     Active Substance: TEDUGLUTIDE
     Indication: Short-bowel syndrome
     Dosage: 1.55 MILLIGRAM, QD
     Route: 042
     Dates: start: 20171026, end: 20171129
  4. TEDUGLUTIDE [Suspect]
     Active Substance: TEDUGLUTIDE
     Indication: Short-bowel syndrome
     Dosage: 1.55 MILLIGRAM, QD
     Route: 042
     Dates: start: 20171026, end: 20171129
  5. TEDUGLUTIDE [Suspect]
     Active Substance: TEDUGLUTIDE
     Dosage: 1.6 MILLIGRAM, QD
     Route: 042
     Dates: start: 20171130, end: 20230921
  6. TEDUGLUTIDE [Suspect]
     Active Substance: TEDUGLUTIDE
     Dosage: 1.6 MILLIGRAM, QD
     Route: 042
     Dates: start: 20171130, end: 20230921
  7. TEDUGLUTIDE [Suspect]
     Active Substance: TEDUGLUTIDE
     Dosage: 1.6 MILLIGRAM, QD
     Route: 042
     Dates: start: 20171130, end: 20230921
  8. TEDUGLUTIDE [Suspect]
     Active Substance: TEDUGLUTIDE
     Dosage: 1.6 MILLIGRAM, QD
     Route: 042
     Dates: start: 20171130, end: 20230921
  9. TEDUGLUTIDE [Suspect]
     Active Substance: TEDUGLUTIDE
     Dosage: 1 MILLIGRAM, QD
     Route: 042
     Dates: start: 20230922
  10. TEDUGLUTIDE [Suspect]
     Active Substance: TEDUGLUTIDE
     Dosage: 1 MILLIGRAM, QD
     Route: 042
     Dates: start: 20230922
  11. TEDUGLUTIDE [Suspect]
     Active Substance: TEDUGLUTIDE
     Dosage: 1 MILLIGRAM, QD
     Route: 042
     Dates: start: 20230922
  12. TEDUGLUTIDE [Suspect]
     Active Substance: TEDUGLUTIDE
     Dosage: 1 MILLIGRAM, QD
     Route: 042
     Dates: start: 20230922
  13. PIPERACILLIN SODIUM\TAZOBACTAM SODIUM [Concomitant]
     Active Substance: PIPERACILLIN SODIUM\TAZOBACTAM SODIUM
     Indication: Vascular device infection
     Dosage: 0.50 GRAM, BID
     Route: 042
     Dates: start: 20220331, end: 20220411
  14. CASPOFUNGIN [Concomitant]
     Active Substance: CASPOFUNGIN
     Indication: Vascular device infection
     Dosage: 50.00 MILLIGRAM, QD
     Route: 042
     Dates: start: 20220328, end: 20220411
  15. MAGNESIUM [Concomitant]
     Active Substance: MAGNESIUM
     Indication: Magnesium deficiency
     Dosage: 100.00 MILLIGRAM, TID
     Route: 048
     Dates: start: 20220404
  16. ELECTROLYTES NOS\MINERALS [Concomitant]
     Active Substance: ELECTROLYTES NOS\MINERALS
     Indication: Nutritional supplementation
     Dosage: 10.00 MILLIGRAM, QD
     Route: 042
     Dates: start: 20200522
  17. Dalteparinnatrium [Concomitant]
     Indication: Prophylaxis
     Dosage: UNK UNK, QD
     Route: 042
     Dates: start: 20231228
  18. MIRTAZAPINE [Concomitant]
     Active Substance: MIRTAZAPINE
     Indication: Affective disorder
     Dosage: 15 MILLIGRAM, QD
     Route: 048
     Dates: start: 20231228
  19. MORPHINE [Concomitant]
     Active Substance: MORPHINE
     Indication: Short-bowel syndrome
     Dosage: 7 GTT DROPS, QID
     Route: 048
     Dates: start: 20231221
  20. KCL [Concomitant]
     Active Substance: POTASSIUM CHLORIDE
     Indication: Nutritional supplementation
     Dosage: 20 MILLILITER, QD
     Route: 042
     Dates: start: 20231221

REACTIONS (7)
  - Acute kidney injury [Recovered/Resolved]
  - Hypokalaemia [Recovered/Resolved]
  - Pneumonia [Recovered/Resolved]
  - Stoma complication [Recovered/Resolved]
  - Diarrhoea [Recovered/Resolved]
  - Anaemia macrocytic [Recovered/Resolved]
  - Vitamin D deficiency [Not Recovered/Not Resolved]

NARRATIVE: CASE EVENT DATE: 20230921
